FAERS Safety Report 5684353-2 (Version None)
Quarter: 2008Q1

REPORT INFORMATION
  Report Type: 
  Country: None (occurrence: None)
  Receive Date: 20080328
  Receipt Date: 20080325
  Transmission Date: 20080703
  Serious: Yes (Hospitalization)
  Sender: FDA-Public Use
  Company Number: B0512366A

PATIENT
  Age: 51 Year
  Sex: Male
  Weight: 64 kg

DRUGS (21)
  1. ARIXTRA [Suspect]
     Indication: THROMBOSIS PROPHYLAXIS
     Dosage: 2.5MG PER DAY
     Route: 058
     Dates: start: 20080304, end: 20080312
  2. CEFMETAZON [Concomitant]
     Indication: DRUG USE FOR UNKNOWN INDICATION
     Dosage: 2G PER DAY
     Route: 042
     Dates: start: 20080304, end: 20080309
  3. HEPARIN LOCK-FLUSH [Concomitant]
     Indication: DRUG USE FOR UNKNOWN INDICATION
     Dosage: 2IU PER DAY
     Route: 042
     Dates: start: 20080304, end: 20080309
  4. VEEN-D [Concomitant]
     Indication: DRUG USE FOR UNKNOWN INDICATION
     Dosage: 500ML PER DAY
     Route: 042
     Dates: start: 20080312, end: 20080314
  5. LACTEC [Concomitant]
     Indication: DRUG USE FOR UNKNOWN INDICATION
     Dosage: 600ML PER DAY
     Route: 042
     Dates: start: 20080306, end: 20080306
  6. MORPHINE HCL ELIXIR [Concomitant]
     Indication: DRUG USE FOR UNKNOWN INDICATION
     Route: 042
     Dates: start: 20080301, end: 20080307
  7. ALPRAZOLAM [Concomitant]
     Indication: DRUG USE FOR UNKNOWN INDICATION
     Dosage: .4MG PER DAY
     Route: 048
     Dates: start: 20080303, end: 20080312
  8. MAGLAX [Concomitant]
     Indication: DRUG USE FOR UNKNOWN INDICATION
     Dosage: 1500MG PER DAY
     Route: 048
     Dates: start: 20080303, end: 20080310
  9. GLYSENNID [Concomitant]
     Indication: DRUG USE FOR UNKNOWN INDICATION
     Dosage: 24MG PER DAY
     Route: 048
     Dates: start: 20080303, end: 20080309
  10. LOXONIN [Concomitant]
     Indication: DRUG USE FOR UNKNOWN INDICATION
     Dosage: 180MG PER DAY
     Route: 048
     Dates: start: 20080303, end: 20080318
  11. TAKEPRON [Concomitant]
     Indication: DRUG USE FOR UNKNOWN INDICATION
     Dosage: 15MG PER DAY
     Route: 048
     Dates: start: 20080303, end: 20080318
  12. LENDORMIN [Concomitant]
     Indication: DRUG USE FOR UNKNOWN INDICATION
     Dosage: .25MG PER DAY
     Route: 048
     Dates: start: 20080303, end: 20080314
  13. CYANOCOBALAMIN [Concomitant]
     Indication: DRUG USE FOR UNKNOWN INDICATION
     Dosage: 1500MCG PER DAY
     Route: 048
     Dates: start: 20080304, end: 20080317
  14. UNKNOWN DRUG [Concomitant]
     Indication: DRUG USE FOR UNKNOWN INDICATION
     Route: 048
     Dates: start: 20080308, end: 20080318
  15. SILECE [Concomitant]
     Indication: DRUG USE FOR UNKNOWN INDICATION
     Route: 048
     Dates: start: 20080310, end: 20080318
  16. FERROMIA [Concomitant]
     Indication: DRUG USE FOR UNKNOWN INDICATION
     Dosage: 100MG PER DAY
     Route: 048
     Dates: start: 20080310, end: 20080313
  17. DEPAS [Concomitant]
     Indication: DRUG USE FOR UNKNOWN INDICATION
     Dosage: 1MG PER DAY
     Route: 048
     Dates: start: 20080310, end: 20080318
  18. NOVAMINE [Concomitant]
     Indication: DRUG USE FOR UNKNOWN INDICATION
     Dosage: 15MG PER DAY
     Route: 048
     Dates: start: 20080311, end: 20080316
  19. MS CONTIN [Concomitant]
     Indication: DRUG USE FOR UNKNOWN INDICATION
     Dosage: 20MG PER DAY
     Route: 048
     Dates: start: 20080311, end: 20080314
  20. AMOXAN [Concomitant]
     Indication: DRUG USE FOR UNKNOWN INDICATION
     Dosage: 25MG PER DAY
     Route: 048
     Dates: start: 20080311, end: 20080318
  21. RIVOTRIL [Concomitant]
     Indication: DRUG USE FOR UNKNOWN INDICATION
     Dosage: .5MG PER DAY
     Route: 048
     Dates: start: 20080311, end: 20080318

REACTIONS (12)
  - ANAEMIA [None]
  - BONE PAIN [None]
  - CONJUNCTIVAL DISCOLOURATION [None]
  - HAEMOGLOBIN DECREASED [None]
  - MALAISE [None]
  - PAIN IN EXTREMITY [None]
  - PALLOR [None]
  - POST PROCEDURAL HAEMATOMA [None]
  - POST PROCEDURAL HAEMORRHAGE [None]
  - SENSORY DISTURBANCE [None]
  - VASCULAR INJURY [None]
  - WOUND COMPLICATION [None]
